FAERS Safety Report 6376927-0 (Version None)
Quarter: 2009Q3

REPORT INFORMATION
  Report Type: 
  Country: None (occurrence: None)
  Receive Date: 20090925
  Receipt Date: 20090915
  Transmission Date: 20100115
  Serious: Yes (Hospitalization, Other)
  Sender: FDA-Public Use
  Company Number: BE-PFIZER INC-2008062384

PATIENT
  Age: 61 Year

DRUGS (4)
  1. SUNITINIB MALATE [Suspect]
     Indication: BREAST CANCER
     Dosage: 37.5MG, DAILY EVERY 2 WEEKS ( ONE WEEK OFF)
     Route: 048
     Dates: start: 20080308, end: 20080723
  2. DOCETAXEL [Suspect]
     Indication: BREAST CANCER
     Dosage: 75 MG/M2, EVERY 3 WEEKS
     Route: 042
     Dates: start: 20080307, end: 20080711
  3. EMCORETIC [Concomitant]
     Dosage: UNK
  4. EUTHROID-1 [Concomitant]
     Dosage: UNK

REACTIONS (3)
  - CONDITION AGGRAVATED [None]
  - PLEURAL EFFUSION [None]
  - PNEUMOPERITONEUM [None]
